FAERS Safety Report 4639630-0 (Version None)
Quarter: 2005Q2

REPORT INFORMATION
  Report Type: 
  Country: None (occurrence: None)
  Receive Date: 20050415
  Receipt Date: 20050406
  Transmission Date: 20051028
  Serious: Yes (Other)
  Sender: FDA-Public Use
  Company Number: GXKR2005JP00886

PATIENT
  Age: 63 Year
  Sex: Male

DRUGS (1)
  1. RIMACTANE [Suspect]
     Dosage: ORAL
     Route: 048

REACTIONS (1)
  - ADRENOCORTICAL INSUFFICIENCY ACUTE [None]
